FAERS Safety Report 9700223 (Version 1)
Quarter: 2013Q4

REPORT INFORMATION
  Report Type: Spontaneous
  Country: AU (occurrence: None)
  Receive Date: 20131119
  Receipt Date: 20131119
  Transmission Date: 20140711
  Serious: Yes (Disabling)
  Sender: FDA-Public Use
  Company Number: VAL_02825_2013

PATIENT
  Age: 62 Year
  Sex: Male

DRUGS (1)
  1. CALCITRIOL [Suspect]
     Indication: VITAMIN SUPPLEMENTATION
     Dosage: (0.3 UG QD)
     Dates: start: 20130913, end: 20130926

REACTIONS (4)
  - Arthralgia [None]
  - Mobility decreased [None]
  - Bone disorder [None]
  - Pain [None]
